FAERS Safety Report 5626261-9 (Version None)
Quarter: 2008Q1

REPORT INFORMATION
  Report Type: 
  Country: None (occurrence: None)
  Receive Date: 20080213
  Receipt Date: 20080213
  Transmission Date: 20080703
  Serious: No
  Sender: FDA-Public Use
  Company Number: None

PATIENT
  Sex: Male
  Weight: 104.3273 kg

DRUGS (2)
  1. ZETIA [Suspect]
     Indication: BLOOD CHOLESTEROL
     Dosage: 1 TABLET DAILY 30
     Dates: start: 20071105
  2. ZETIA [Suspect]
     Indication: BLOOD CHOLESTEROL
     Dosage: 1 TABLET DAILY 30
     Dates: start: 20071106

REACTIONS (4)
  - ARTHRALGIA [None]
  - BACK PAIN [None]
  - HEADACHE [None]
  - NAUSEA [None]
